FAERS Safety Report 17182693 (Version 1)
Quarter: 2019Q4

REPORT INFORMATION
  Report Type: Spontaneous
  Country: US (occurrence: US)
  Receive Date: 20191127
  Receipt Date: 20191127
  Transmission Date: 20200122
  Serious: No
  Sender: FDA-Public Use
  Company Number: None

PATIENT
  Age: 64 Year
  Sex: Female

DRUGS (1)
  1. VERZENIO [Suspect]
     Active Substance: ABEMACICLIB
     Indication: BREAST CANCER
     Route: 048
     Dates: start: 201907, end: 201911

REACTIONS (5)
  - Dyspnoea [None]
  - Therapy change [None]
  - Fatigue [None]
  - Heart rate increased [None]
  - Muscular weakness [None]

NARRATIVE: CASE EVENT DATE: 20191106
